FAERS Safety Report 9025542 (Version 2)
Quarter: 2013Q1

REPORT INFORMATION
  Report Type: Report from Study
  Country: US (occurrence: US)
  Receive Date: 20130122
  Receipt Date: 20130212
  Transmission Date: 20140127
  Serious: Yes (Other)
  Sender: FDA-Public Use
  Company Number: US-JNJFOC-20130109432

PATIENT
  Sex: Male
  Weight: 65.32 kg

DRUGS (9)
  1. NUCYNTA ER [Suspect]
     Indication: BACK PAIN
     Dosage: 100MG ONCE A DAY
     Route: 048
     Dates: start: 201203, end: 20120428
  2. NUCYNTA ER [Suspect]
     Indication: BACK PAIN
     Dosage: 100MG TWICE A DAY
     Route: 048
     Dates: start: 201203, end: 201203
  3. NUCYNTA ER [Suspect]
     Indication: ARTHRALGIA
     Dosage: 100MG TWICE A DAY
     Route: 048
     Dates: start: 201203, end: 201203
  4. NUCYNTA ER [Suspect]
     Indication: ARTHRALGIA
     Dosage: 100MG ONCE A DAY
     Route: 048
     Dates: start: 201203, end: 20120428
  5. UNKNOWN MEDICATION [Suspect]
     Indication: PRODUCT USED FOR UNKNOWN INDICATION
     Route: 065
  6. PAXIL [Concomitant]
     Indication: NERVOUSNESS
     Dosage: ONCE A DAY. 10 YEARS.
     Route: 048
     Dates: start: 2000
  7. PAXIL [Concomitant]
     Indication: DEPRESSION
     Dosage: ONCE A DAY. 10 YEARS.
     Route: 048
     Dates: start: 2000
  8. NEXIUM [Concomitant]
     Indication: GASTROOESOPHAGEAL REFLUX DISEASE
     Dosage: 9 YEARS
     Route: 065
  9. LYRICA [Concomitant]
     Indication: FIBROMYALGIA
     Dosage: ON ABOUT 8 YEARS
     Route: 065

REACTIONS (7)
  - Depression [Recovered/Resolved]
  - Analgesic drug level above therapeutic [Recovered/Resolved]
  - Loss of consciousness [Recovered/Resolved]
  - Feeling abnormal [Recovered/Resolved]
  - Weight decreased [Not Recovered/Not Resolved]
  - Decreased appetite [Not Recovered/Not Resolved]
  - Drug hypersensitivity [Not Recovered/Not Resolved]
